FAERS Safety Report 6650373-4 (Version None)
Quarter: 2010Q1

REPORT INFORMATION
  Report Type: 
  Country: None (occurrence: None)
  Receive Date: 20100322
  Receipt Date: 20100308
  Transmission Date: 20100710
  Serious: Yes (Other)
  Sender: FDA-Public Use
  Company Number: 2010AL001154

PATIENT
  Age: 77 Year
  Sex: Male

DRUGS (1)
  1. AMLODIPINE BESYLATE [Suspect]
     Indication: ANGINA PECTORIS
     Dosage: 5 MG;QD
     Dates: start: 20050919

REACTIONS (2)
  - ANGINA PECTORIS [None]
  - RASH GENERALISED [None]
